FAERS Safety Report 18772416 (Version 1)
Quarter: 2021Q1

REPORT INFORMATION
  Report Type: Spontaneous
  Country: US (occurrence: US)
  Receive Date: 20210121
  Receipt Date: 20210121
  Transmission Date: 20210419
  Serious: No
  Sender: FDA-Public Use
  Company Number: US-BRACCO-2020US04648

PATIENT
  Sex: Female

DRUGS (1)
  1. READI?CAT 2 [Suspect]
     Active Substance: BARIUM SULFATE
     Indication: COMPUTERISED TOMOGRAM
     Dosage: 2 BOTTLES, SINGLE
     Route: 048
     Dates: start: 20201110, end: 20201110

REACTIONS (2)
  - Diarrhoea [Recovered/Resolved]
  - Constipation [Recovering/Resolving]

NARRATIVE: CASE EVENT DATE: 20201110
